FAERS Safety Report 6333504-5 (Version None)
Quarter: 2009Q3

REPORT INFORMATION
  Report Type: 
  Country: None (occurrence: None)
  Receive Date: 20090828
  Receipt Date: 20090819
  Transmission Date: 20100115
  Serious: Yes (Hospitalization)
  Sender: FDA-Public Use
  Company Number: JP-ABBOTT-09P-087-0588358-00

PATIENT
  Sex: Female
  Weight: 44.5 kg

DRUGS (11)
  1. HUMIRA [Suspect]
     Indication: RHEUMATOID ARTHRITIS
     Route: 058
     Dates: start: 20090115, end: 20090326
  2. HUMIRA [Suspect]
     Route: 058
     Dates: start: 20090423, end: 20090608
  3. HUMIRA [Suspect]
     Route: 058
     Dates: start: 20090710
  4. METHOTREXATE [Concomitant]
     Indication: RHEUMATOID ARTHRITIS
     Dates: start: 20090327, end: 20090403
  5. METHOTREXATE [Concomitant]
     Dates: start: 20090415
  6. PREDNISOLONE [Concomitant]
     Indication: RHEUMATOID ARTHRITIS
     Route: 042
     Dates: start: 20090327, end: 20090327
  7. PREDNISOLONE [Concomitant]
     Route: 042
     Dates: start: 20090406, end: 20090406
  8. PREDNISOLONE [Concomitant]
     Route: 048
  9. METHYLPREDNISOLONE ACETATE [Concomitant]
     Indication: RHEUMATOID ARTHRITIS
  10. RANITIDINE HYDROCHLORIDE [Concomitant]
     Indication: GASTRITIS PROPHYLAXIS
  11. RISEDRONATE SODIUM [Concomitant]
     Indication: OSTEOPOROSIS PROPHYLAXIS

REACTIONS (1)
  - CATARACT [None]
